FAERS Safety Report 4603741-6 (Version None)
Quarter: 2005Q1

REPORT INFORMATION
  Report Type: 
  Country: None (occurrence: None)
  Receive Date: 20050308
  Receipt Date: 20050308
  Transmission Date: 20050727
  Serious: Yes (Hospitalization)
  Sender: FDA-Public Use
  Company Number: None

PATIENT
  Age: 57 Year
  Sex: Male
  Weight: 63.6 kg

DRUGS (1)
  1. DIGOXIN [Suspect]

REACTIONS (4)
  - DRUG LEVEL ABOVE THERAPEUTIC [None]
  - ELECTROCARDIOGRAM ABNORMAL [None]
  - ORAL INTAKE REDUCED [None]
  - RENAL FAILURE ACUTE [None]
